FAERS Safety Report 6527072-2 (Version None)
Quarter: 2009Q4

REPORT INFORMATION
  Report Type: 
  Country: None (occurrence: None)
  Receive Date: 20091229
  Receipt Date: 20091215
  Transmission Date: 20100525
  Serious: Yes (Other)
  Sender: FDA-Public Use
  Company Number: 2009AP005072

PATIENT
  Age: 42 Year
  Sex: Male

DRUGS (4)
  1. RISPERIDONE [Suspect]
     Dosage: 6 MG; PO; QD
     Route: 048
     Dates: end: 20080601
  2. CLOZARIL [Suspect]
     Indication: SCHIZOPHRENIA
     Dosage: 300 MG; PO; 150 MG; PO; QD
     Route: 048
     Dates: start: 20080422
  3. CLOZARIL [Suspect]
     Indication: SCHIZOPHRENIA
     Dosage: 300 MG; PO; 150 MG; PO; QD
     Route: 048
     Dates: start: 20080511
  4. THIAMINE (THIAMINE) [Concomitant]

REACTIONS (4)
  - ANXIETY [None]
  - BLOOD PRESSURE DIASTOLIC INCREASED [None]
  - FATIGUE [None]
  - TACHYCARDIA [None]
